FAERS Safety Report 5827302-6 (Version None)
Quarter: 2008Q3

REPORT INFORMATION
  Report Type: 
  Country: None (occurrence: None)
  Receive Date: 20080730
  Receipt Date: 20080728
  Transmission Date: 20090109
  Serious: Yes (Other)
  Sender: FDA-Public Use
  Company Number: US-BAYER-200810772BCC

PATIENT
  Age: 46 Year
  Sex: Female

DRUGS (4)
  1. ALEVE [Suspect]
     Indication: NERVE COMPRESSION
     Dosage: TOTAL DAILY DOSE: 880 MG  UNIT DOSE: 220 MG
     Route: 048
     Dates: start: 20080207, end: 20080221
  2. SKELAXIN [Suspect]
     Indication: DRUG USE FOR UNKNOWN INDICATION
  3. LEVOXYL [Concomitant]
  4. PRILOSEC [Concomitant]

REACTIONS (1)
  - VOMITING [None]
